FAERS Safety Report 9309125 (Version 1)
Quarter: 2013Q2

REPORT INFORMATION
  Report Type: Spontaneous
  Country: US (occurrence: US)
  Receive Date: 20130525
  Receipt Date: 20130525
  Transmission Date: 20140414
  Serious: No
  Sender: FDA-Public Use
  Company Number: US-BRISTOL-MYERS SQUIBB COMPANY-18696906

PATIENT
  Sex: Female

DRUGS (1)
  1. BYDUREON [Suspect]
     Route: 058

REACTIONS (2)
  - Injection site nodule [Unknown]
  - Injection site pain [Unknown]
